FAERS Safety Report 15464500 (Version 2)
Quarter: 2018Q4

REPORT INFORMATION
  Report Type: Spontaneous
  Country: GB (occurrence: GB)
  Receive Date: 20181004
  Receipt Date: 20181108
  Transmission Date: 20190204
  Serious: Yes (Death, Other)
  Sender: FDA-Public Use
  Company Number: GB-ASTRAZENECA-2018SF12214

PATIENT
  Sex: Female
  Weight: 98 kg

DRUGS (12)
  1. BRILIQUE [Suspect]
     Active Substance: TICAGRELOR
     Indication: STENT PLACEMENT
     Route: 048
     Dates: start: 20170918, end: 20180913
  2. OMEPRAZOLE. [Concomitant]
     Active Substance: OMEPRAZOLE
     Dosage: 20 MG
  3. BISOPROLOL [Concomitant]
     Active Substance: BISOPROLOL
  4. APIDRA [Concomitant]
     Active Substance: INSULIN GLULISINE
     Dosage: DAILY
  5. ASPIRIN. [Concomitant]
     Active Substance: ASPIRIN
  6. BRILIQUE [Suspect]
     Active Substance: TICAGRELOR
     Indication: ANTICOAGULANT THERAPY
     Route: 048
     Dates: start: 20170918, end: 20180913
  7. LEVOTHYROXINE. [Concomitant]
     Active Substance: LEVOTHYROXINE
     Dosage: 50 MG
  8. LERCANIDIPINE [Concomitant]
     Active Substance: LERCANIDIPINE
  9. LOSARTAN. [Concomitant]
     Active Substance: LOSARTAN
     Dosage: 78 MG
  10. LANTUS [Concomitant]
     Active Substance: INSULIN GLARGINE
  11. ISOSORBIDE MONONITRATE. [Concomitant]
     Active Substance: ISOSORBIDE MONONITRATE
  12. EZETIMIBE. [Concomitant]
     Active Substance: EZETIMIBE
     Dosage: DAILY

REACTIONS (8)
  - Cardiac arrest [Fatal]
  - Asthenia [Not Recovered/Not Resolved]
  - Pain [Not Recovered/Not Resolved]
  - Arthralgia [Not Recovered/Not Resolved]
  - Vertigo [Not Recovered/Not Resolved]
  - Nocturnal dyspnoea [Fatal]
  - Dizziness [Fatal]
  - Back pain [Unknown]
